FAERS Safety Report 10153930 (Version 1)
Quarter: 2014Q2

REPORT INFORMATION
  Report Type: Spontaneous
  Country: US (occurrence: US)
  Receive Date: 20140506
  Receipt Date: 20140506
  Transmission Date: 20141212
  Serious: No
  Sender: FDA-Public Use
  Company Number: US-SHIRE-US201401458

PATIENT
  Age: 55 Year
  Sex: Female
  Weight: 62.59 kg

DRUGS (1)
  1. LIALDA [Suspect]
     Indication: COLITIS ULCERATIVE
     Dosage: 2.4 G, 1X/DAY:QD (TWO 1.2 G TABLETS)
     Route: 048
     Dates: start: 201401, end: 20140405

REACTIONS (1)
  - Alopecia [Not Recovered/Not Resolved]
